FAERS Safety Report 5062570-2 (Version None)
Quarter: 2006Q3

REPORT INFORMATION
  Report Type: 
  Country: None (occurrence: None)
  Receive Date: 20060721
  Receipt Date: 20060706
  Transmission Date: 20061208
  Serious: Yes (Other)
  Sender: FDA-Public Use
  Company Number: DSA_28411_2006

PATIENT
  Sex: Male

DRUGS (1)
  1. ENALAPRIL MALEATE [Suspect]
     Dosage: 20 MG
     Dates: start: 19980101, end: 20050101

REACTIONS (7)
  - BLOOD PHOSPHORUS DECREASED [None]
  - BONE DISORDER [None]
  - OSTEOARTHRITIS [None]
  - OSTEOMALACIA [None]
  - OSTEOPOROSIS [None]
  - RHEUMATOID ARTHRITIS [None]
  - SCOLIOSIS [None]
